FAERS Safety Report 14699603 (Version 2)
Quarter: 2018Q2

REPORT INFORMATION
  Report Type: Spontaneous
  Country: US (occurrence: US)
  Receive Date: 20180330
  Receipt Date: 20180424
  Transmission Date: 20180711
  Serious: Yes (Hospitalization, Other)
  Sender: FDA-Public Use
  Company Number: US-GLAXOSMITHKLINE-US2018053240

PATIENT
  Sex: Female

DRUGS (1)
  1. SORIATANE [Suspect]
     Active Substance: ACITRETIN
     Indication: SKIN DISORDER
     Dosage: UNK

REACTIONS (5)
  - Skin disorder [Unknown]
  - Staphylococcal infection [Not Recovered/Not Resolved]
  - Infection [Not Recovered/Not Resolved]
  - Drug dose omission [Unknown]
  - Condition aggravated [Unknown]
